FAERS Safety Report 24838689 (Version 1)
Quarter: 2025Q1

REPORT INFORMATION
  Report Type: Spontaneous
  Country: CN (occurrence: CN)
  Receive Date: 20250113
  Receipt Date: 20250113
  Transmission Date: 20250409
  Serious: Yes (Other)
  Sender: BEIGENE
  Company Number: CN-GTI-000250

PATIENT

DRUGS (13)
  1. BRUKINSA [Suspect]
     Active Substance: ZANUBRUTINIB
     Indication: White blood cell count abnormal
  2. BRUKINSA [Suspect]
     Active Substance: ZANUBRUTINIB
     Indication: Richter^s syndrome
  3. CYCLOPHOSPHAMIDE [Suspect]
     Active Substance: CYCLOPHOSPHAMIDE
     Indication: White blood cell count abnormal
  4. CYCLOPHOSPHAMIDE [Suspect]
     Active Substance: CYCLOPHOSPHAMIDE
     Indication: Richter^s syndrome
  5. PREDNISONE [Suspect]
     Active Substance: PREDNISONE
     Indication: White blood cell count abnormal
  6. PREDNISONE [Suspect]
     Active Substance: PREDNISONE
     Indication: Richter^s syndrome
  7. VINCRISTINE [Suspect]
     Active Substance: VINCRISTINE
     Indication: White blood cell count abnormal
  8. VINCRISTINE [Suspect]
     Active Substance: VINCRISTINE
     Indication: Richter^s syndrome
  9. DOXORUBICIN [Suspect]
     Active Substance: DOXORUBICIN
     Indication: White blood cell count abnormal
  10. DOXORUBICIN [Suspect]
     Active Substance: DOXORUBICIN
     Indication: Richter^s syndrome
  11. RITUXIMAB [Suspect]
     Active Substance: RITUXIMAB
     Indication: White blood cell count abnormal
  12. RITUXIMAB [Suspect]
     Active Substance: RITUXIMAB
     Indication: Richter^s syndrome
  13. HYDROXYUREA [Concomitant]
     Active Substance: HYDROXYUREA

REACTIONS (6)
  - Myelosuppression [Unknown]
  - Tumour invasion [Unknown]
  - Tracheal stenosis [Unknown]
  - Therapy partial responder [Unknown]
  - Drug ineffective [Unknown]
  - Off label use [Unknown]
